FAERS Safety Report 12537495 (Version 1)
Quarter: 2016Q3

REPORT INFORMATION
  Report Type: Spontaneous
  Country: US (occurrence: US)
  Receive Date: 20160707
  Receipt Date: 20160707
  Transmission Date: 20161109
  Serious: No
  Sender: FDA-Public Use
  Company Number: US-AMAG PHARMACEUTICALS, INC.-AMAG201500645

PATIENT
  Age: 61 Year
  Sex: Female
  Weight: 73.92 kg

DRUGS (6)
  1. FERAHEME [Suspect]
     Active Substance: FERUMOXYTOL NON-STOICHIOMETRIC MAGNETITE
     Indication: HEREDITARY HAEMORRHAGIC TELANGIECTASIA
     Dosage: 510 MG, SINGLE
     Route: 040
     Dates: start: 20140905, end: 20140905
  2. DOXYCYCLINE. [Concomitant]
     Active Substance: DOXYCYCLINE
     Dosage: UNK
  3. FERAHEME [Suspect]
     Active Substance: FERUMOXYTOL NON-STOICHIOMETRIC MAGNETITE
     Dosage: 510 UNK, UNK
     Route: 040
     Dates: start: 20140915, end: 20140915
  4. AMINOCAPROIC ACID. [Concomitant]
     Active Substance: AMINOCAPROIC ACID
     Dosage: UNK
  5. IRON [Concomitant]
     Active Substance: IRON
     Indication: HEREDITARY HAEMORRHAGIC TELANGIECTASIA
     Route: 041
  6. IBUPROFEN. [Concomitant]
     Active Substance: IBUPROFEN
     Dosage: UNK

REACTIONS (2)
  - Infusion site discolouration [Unknown]
  - Infusion site pain [Not Recovered/Not Resolved]

NARRATIVE: CASE EVENT DATE: 20150905
